FAERS Safety Report 7756219-5 (Version None)
Quarter: 2011Q3

REPORT INFORMATION
  Report Type: 
  Country: None (occurrence: None)
  Receive Date: 20110916
  Receipt Date: 20110831
  Transmission Date: 20111222
  Serious: No
  Sender: FDA-Public Use
  Company Number: US-ABBOTT-11P-163-0851079-00

PATIENT
  Sex: Male
  Weight: 111.23 kg

DRUGS (4)
  1. TRILIPIX [Suspect]
     Dates: start: 20110822, end: 20110831
  2. BISOPROLOL FUMARATE [Concomitant]
     Indication: HYPERTENSION
  3. OMEPRAZOLE [Concomitant]
     Indication: GASTROOESOPHAGEAL REFLUX DISEASE
  4. TRILIPIX [Suspect]
     Indication: BLOOD TRIGLYCERIDES INCREASED
     Dates: start: 20080101, end: 20100101

REACTIONS (4)
  - PAIN IN EXTREMITY [None]
  - OEDEMA PERIPHERAL [None]
  - MUSCLE SPASMS [None]
  - HOT FLUSH [None]
